FAERS Safety Report 25726872 (Version 2)
Quarter: 2025Q4

REPORT INFORMATION
  Report Type: Spontaneous
  Country: GB (occurrence: GB)
  Receive Date: 20250826
  Receipt Date: 20251002
  Transmission Date: 20260118
  Serious: Yes (Other)
  Sender: Thea Pharma
  Company Number: GB-THEA-2025002079

PATIENT
  Sex: Female

DRUGS (4)
  1. LATANOPROST [Suspect]
     Active Substance: LATANOPROST
     Indication: Glaucoma
     Dosage: AROUND 6 WEEKS DURATION
     Dates: start: 2025, end: 2025
  2. AZOPT [Concomitant]
     Active Substance: BRINZOLAMIDE
     Indication: Product used for unknown indication
  3. TIMOLOL MALEATE [Concomitant]
     Active Substance: TIMOLOL MALEATE
     Indication: Product used for unknown indication
  4. REFRESH CELLUVISC [Concomitant]
     Active Substance: CARBOXYMETHYLCELLULOSE SODIUM
     Indication: Product used for unknown indication

REACTIONS (15)
  - Visual impairment [Unknown]
  - Cerebrovascular accident [Unknown]
  - Eye operation [Unknown]
  - Blindness transient [Unknown]
  - Blindness unilateral [Unknown]
  - Oral discomfort [Unknown]
  - Hypokinesia [Unknown]
  - Fatigue [Unknown]
  - Lip blister [Unknown]
  - Mouth ulceration [Unknown]
  - Dysphonia [Unknown]
  - Oropharyngeal pain [Unknown]
  - Eye pain [Unknown]
  - Impaired quality of life [Unknown]
  - Product label issue [Unknown]

NARRATIVE: CASE EVENT DATE: 20250101
